FAERS Safety Report 9257506 (Version 1)
Quarter: 2013Q2

REPORT INFORMATION
  Report Type: Spontaneous
  Country: US (occurrence: US)
  Receive Date: 20130426
  Receipt Date: 20130426
  Transmission Date: 20140414
  Serious: No
  Sender: FDA-Public Use
  Company Number: US-PFIZER INC-2013128626

PATIENT
  Age: 68 Year
  Sex: Female
  Weight: 86.17 kg

DRUGS (3)
  1. CELEBREX [Suspect]
     Indication: FIBROMYALGIA
     Dosage: 200 MG, 1X/DAY
     Route: 048
     Dates: start: 201304, end: 20130420
  2. CELEBREX [Suspect]
     Indication: PAIN
  3. VESICARE [Concomitant]
     Indication: URINARY TRACT DISORDER
     Dosage: UNK

REACTIONS (2)
  - Rash [Recovered/Resolved]
  - Feeling abnormal [Unknown]
